FAERS Safety Report 6602200-9 (Version None)
Quarter: 2010Q1

REPORT INFORMATION
  Report Type: 
  Country: None (occurrence: None)
  Receive Date: 20100225
  Receipt Date: 20100215
  Transmission Date: 20100710
  Serious: Yes (Hospitalization, Other)
  Sender: FDA-Public Use
  Company Number: DE-PFIZER INC-2010003571

PATIENT
  Age: 81 Year
  Sex: Male
  Weight: 90 kg

DRUGS (5)
  1. CELEBREX [Suspect]
     Indication: OSTEOARTHRITIS
     Dosage: 100 MG, 2X/DAY
     Route: 048
     Dates: start: 20090924, end: 20091204
  2. MARCUMAR [Concomitant]
     Indication: ATRIAL FIBRILLATION
     Dosage: DOSE ACCORDING TO INR
     Route: 048
  3. NOVODIGAL [Concomitant]
     Dosage: 0.2 MG, 1X/DAY
     Route: 048
  4. OLMETEC [Concomitant]
     Dosage: 20 MG, 1X/DAY
     Route: 048
     Dates: end: 20091201
  5. TAFLUPROST [Concomitant]
     Indication: GLAUCOMA
     Dosage: 2 GTT, 1X/DAY PER EYE
     Route: 031

REACTIONS (8)
  - CONTUSION [None]
  - DUODENAL ULCER [None]
  - DUODENITIS [None]
  - GASTRITIS [None]
  - HAEMORRHAGIC ANAEMIA [None]
  - REFLUX OESOPHAGITIS [None]
  - SYNCOPE [None]
  - UPPER GASTROINTESTINAL HAEMORRHAGE [None]
